FAERS Safety Report 5795396-2 (Version None)
Quarter: 2008Q2

REPORT INFORMATION
  Report Type: 
  Country: None (occurrence: None)
  Receive Date: 20080626
  Receipt Date: 20080612
  Transmission Date: 20081010
  Serious: Yes (Hospitalization)
  Sender: FDA-Public Use
  Company Number: 2008AL006858

PATIENT
  Sex: Male

DRUGS (1)
  1. DIGOXIN [Suspect]

REACTIONS (2)
  - ARRHYTHMIA [None]
  - LOSS OF CONSCIOUSNESS [None]
